FAERS Safety Report 4677113-2 (Version None)
Quarter: 2005Q2

REPORT INFORMATION
  Report Type: 
  Country: None (occurrence: None)
  Receive Date: 20050525
  Receipt Date: 20050525
  Transmission Date: 20051028
  Serious: Yes (Hospitalization)
  Sender: FDA-Public Use
  Company Number: None

PATIENT
  Age: 67 Year
  Sex: Male
  Weight: 101.6057 kg

DRUGS (7)
  1. IRESSA [Suspect]
     Indication: OESOPHAGEAL CARCINOMA
     Dosage: 250MG ONCE/DAILY  ORALLY
     Route: 048
     Dates: start: 20050423
  2. CISPLATIN [Suspect]
     Indication: OESOPHAGEAL CARCINOMA
     Dosage: 75 MG/M2
     Dates: start: 20050516
  3. FLUOROURACIL [Suspect]
     Indication: OESOPHAGEAL CARCINOMA
     Dosage: 1000MG/M2 IV
     Route: 042
     Dates: start: 20050516
  4. LISINOPRIL [Concomitant]
  5. LIPITOR [Concomitant]
  6. COMPAZINE [Concomitant]
  7. ZOFRAN [Concomitant]

REACTIONS (6)
  - DEHYDRATION [None]
  - DIARRHOEA [None]
  - FATIGUE [None]
  - HYPOVOLAEMIA [None]
  - NAUSEA [None]
  - ORAL INTAKE REDUCED [None]
